FAERS Safety Report 6386982-X (Version None)
Quarter: 2009Q4

REPORT INFORMATION
  Report Type: 
  Country: None (occurrence: None)
  Receive Date: 20091002
  Receipt Date: 20090918
  Transmission Date: 20100525
  Serious: Yes (Life-Threatening, Hospitalization, Other)
  Sender: FDA-Public Use
  Company Number: PL-GENENTECH-291086

PATIENT
  Age: 54 Year
  Sex: Male

DRUGS (11)
  1. MABTHERA [Suspect]
     Indication: APLASIA PURE RED CELL
     Dosage: 150 MG/M2, UNK
     Route: 065
  2. NEORECORMON [Suspect]
     Indication: APLASIA PURE RED CELL
     Dosage: 10000 IU, 3/WEEK
     Route: 058
  3. CYMEVENE [Suspect]
     Indication: CYTOMEGALOVIRUS INFECTION
     Dosage: 10 MG/KG, UNK
     Route: 065
  4. TREOSULFAN [Suspect]
     Indication: IMMUNOSUPPRESSION
     Route: 065
  5. ENDOXAN [Suspect]
     Indication: IMMUNOSUPPRESSION
     Dosage: 30 MG/KG, UNK
     Route: 065
  6. CYCLOSPORINE [Suspect]
     Indication: GRAFT VERSUS HOST DISEASE
     Route: 065
  7. MYLERAN [Concomitant]
     Indication: DRUG USE FOR UNKNOWN INDICATION
  8. FLUDARA [Concomitant]
     Indication: DRUG USE FOR UNKNOWN INDICATION
  9. ANTI-THYMOCYTE GLOBULIN NOS [Concomitant]
     Indication: DRUG USE FOR UNKNOWN INDICATION
  10. SANDIMMUNE [Concomitant]
     Indication: DRUG USE FOR UNKNOWN INDICATION
  11. GAMMAGARD [Concomitant]
     Indication: DRUG USE FOR UNKNOWN INDICATION

REACTIONS (7)
  - ANAEMIA [None]
  - BRONCHOPULMONARY ASPERGILLOSIS [None]
  - CYTOMEGALOVIRUS INFECTION [None]
  - DRUG INEFFECTIVE [None]
  - GRAFT LOSS [None]
  - PARVOVIRUS INFECTION [None]
  - SEPTIC SHOCK [None]
